FAERS Safety Report 9845379 (Version 1)
Quarter: 2014Q1

REPORT INFORMATION
  Report Type: Spontaneous
  Country: US (occurrence: None)
  Receive Date: 20140122
  Receipt Date: 20140122
  Transmission Date: 20141002
  Serious: Yes (Death)
  Sender: FDA-Public Use
  Company Number: 2014P1000443

PATIENT
  Age: 86 Year
  Sex: Female

DRUGS (1)
  1. DIGOXIN [Suspect]
     Route: 048

REACTIONS (2)
  - Adverse drug reaction [None]
  - Cardioactive drug level increased [None]
